FAERS Safety Report 17753251 (Version 1)
Quarter: 2020Q2

REPORT INFORMATION
  Report Type: Spontaneous
  Country: GB (occurrence: GB)
  Receive Date: 20200506
  Receipt Date: 20200506
  Transmission Date: 20200714
  Serious: Yes (Other)
  Sender: FDA-Public Use
  Company Number: NVSC2020GB121735

PATIENT
  Age: 47 Year
  Sex: Male
  Weight: 102 kg

DRUGS (3)
  1. PHENOXYMETHYLPENICILLIN [Concomitant]
     Active Substance: PENICILLIN V
     Indication: TONSILLITIS
     Route: 065
  2. METRONIDAZOLE. [Suspect]
     Active Substance: METRONIDAZOLE
     Indication: TONSILLITIS
     Dosage: UNK
     Route: 042
  3. METRONIDAZOLE. [Suspect]
     Active Substance: METRONIDAZOLE
     Dosage: 1200 MG, QD
     Route: 048
     Dates: start: 20200129

REACTIONS (3)
  - Malaise [Unknown]
  - Gastrooesophageal reflux disease [Recovered/Resolved with Sequelae]
  - Flatulence [Unknown]

NARRATIVE: CASE EVENT DATE: 20200129
